FAERS Safety Report 9390380 (Version 1)
Quarter: 2013Q3

REPORT INFORMATION
  Report Type: Spontaneous
  Country: US (occurrence: None)
  Receive Date: 20130703
  Receipt Date: 20130703
  Transmission Date: 20140515
  Serious: Yes (Other)
  Sender: FDA-Public Use
  Company Number: None

PATIENT
  Age: 69 Year
  Sex: Female

DRUGS (1)
  1. AFINITOR [Suspect]
     Route: 048
     Dates: start: 20130418

REACTIONS (7)
  - Blood glucose increased [None]
  - Blood albumin decreased [None]
  - Nephropathy [None]
  - Chapped lips [None]
  - Genital erosion [None]
  - Vulvovaginal dryness [None]
  - Anorectal disorder [None]
